FAERS Safety Report 4493633-8 (Version None)
Quarter: 2004Q3

REPORT INFORMATION
  Report Type: 
  Country: None (occurrence: None)
  Receive Date: 20040921
  Receipt Date: 20040120
  Transmission Date: 20050211
  Serious: Yes (Death, Life-Threatening, Hospitalization)
  Sender: FDA-Public Use
  Company Number: 163-20785-04010598

PATIENT
  Age: 72 Year
  Sex: Male
  Weight: 78 kg

DRUGS (9)
  1. THALOMID [Suspect]
     Indication: ANAPLASTIC ASTROCYTOMA
     Dosage: 100-300 MG, DAILY, ORAL
     Route: 048
     Dates: start: 20031224, end: 20040112
  2. CYCLOPHOSPHAMIDE [Suspect]
     Indication: ANAPLASTIC ASTROCYTOMA
     Dosage: 100 MG, DAILY, ORAL
     Route: 048
     Dates: start: 20031224, end: 20040112
  3. NORVASC [Concomitant]
  4. HYDROCHLOROTHIAZIDE [Concomitant]
  5. DECADRON [Concomitant]
  6. RESTORIL [Concomitant]
  7. METAMUCIL-2 [Concomitant]
  8. COLACE (DOCUSATE SODIUM) [Concomitant]
  9. MULTIVITAMIN (MULTIVITAMINS) [Concomitant]

REACTIONS (8)
  - DEATH [None]
  - DEPRESSION [None]
  - DYSPNOEA [None]
  - GENERAL PHYSICAL HEALTH DETERIORATION [None]
  - LIVER SCAN ABNORMAL [None]
  - PNEUMONIA [None]
  - PULMONARY EMBOLISM [None]
  - SUPRAVENTRICULAR TACHYCARDIA [None]
